FAERS Safety Report 6233052-7 (Version None)
Quarter: 2009Q2

REPORT INFORMATION
  Report Type: 
  Country: None (occurrence: None)
  Receive Date: 20090616
  Receipt Date: 20090616
  Transmission Date: 20091009
  Serious: No
  Sender: FDA-Public Use
  Company Number: None

PATIENT
  Age: 61 Year
  Sex: Male
  Weight: 78.64 kg

DRUGS (1)
  1. METRONIDAZOLE [Suspect]
     Dosage: 500 MG TID PO
     Route: 048
     Dates: start: 20090224, end: 20090225

REACTIONS (1)
  - NEUTROPENIA [None]
